FAERS Safety Report 22390139 (Version 3)
Quarter: 2023Q2

REPORT INFORMATION
  Report Type: Spontaneous
  Country: US (occurrence: US)
  Receive Date: 20230531
  Receipt Date: 20230606
  Transmission Date: 20230722
  Serious: No
  Sender: FDA-Public Use
  Company Number: US-Dermavant-000648

PATIENT
  Age: 71 Year
  Sex: Male

DRUGS (1)
  1. TAPINAROF [Suspect]
     Active Substance: TAPINAROF
     Indication: Psoriasis
     Dosage: AREA OF APPLICATION: BELLY LINE AND GROIN AREA
     Route: 061
     Dates: start: 20230317, end: 20230510

REACTIONS (1)
  - Dermatitis [Unknown]
